FAERS Safety Report 5165133-3 (Version None)
Quarter: 2006Q4

REPORT INFORMATION
  Report Type: 
  Country: None (occurrence: None)
  Receive Date: 20061127
  Receipt Date: 20061113
  Transmission Date: 20070319
  Serious: No
  Sender: FDA-Public Use
  Company Number: 2006-149695-NL

PATIENT
  Age: 65 Year
  Sex: Female

DRUGS (2)
  1. DEXAMETHASONE [Suspect]
     Indication: PROPHYLAXIS OF NAUSEA AND VOMITING
     Dosage: 8 MG ONCE INTRAVENOS (NOS)
     Route: 042
  2. ATORVASTATIN [Concomitant]

REACTIONS (7)
  - BURNING SENSATION [None]
  - GENITAL PAIN FEMALE [None]
  - HEART RATE INCREASED [None]
  - HYPERTENSIVE CRISIS [None]
  - MYOCARDIAL ISCHAEMIA [None]
  - PAIN [None]
  - PARAESTHESIA [None]
